FAERS Safety Report 9371136 (Version 2)
Quarter: 2013Q3

REPORT INFORMATION
  Report Type: Report from Study
  Country: CA (occurrence: CA)
  Receive Date: 20130627
  Receipt Date: 20130813
  Transmission Date: 20140515
  Serious: Yes (Other)
  Sender: FDA-Public Use
  Company Number: CA-ROCHE-1241826

PATIENT
  Age: 67 Year
  Sex: Female
  Weight: 55.8 kg

DRUGS (5)
  1. RANIBIZUMAB [Suspect]
     Indication: AGE-RELATED MACULAR DEGENERATION
     Route: 050
     Dates: start: 20120209, end: 20120904
  2. DILTIAZEM [Concomitant]
     Route: 065
     Dates: start: 1992
  3. SYNTHROID [Concomitant]
     Route: 065
     Dates: start: 1982
  4. ALPRAZOLAM [Concomitant]
     Route: 065
     Dates: start: 1962
  5. LANSOPRAZOLE [Concomitant]
     Route: 065
     Dates: start: 1992

REACTIONS (2)
  - Retinal haemorrhage [Not Recovered/Not Resolved]
  - Visual acuity reduced [Unknown]
